FAERS Safety Report 7619058-1 (Version None)
Quarter: 2011Q3

REPORT INFORMATION
  Report Type: 
  Country: None (occurrence: None)
  Receive Date: 20110718
  Receipt Date: 20110707
  Transmission Date: 20111222
  Serious: Yes (Hospitalization)
  Sender: FDA-Public Use
  Company Number: SE-ASTRAZENECA-2011SE41588

PATIENT
  Age: 66 Year
  Sex: Male

DRUGS (7)
  1. ASPIRIN [Concomitant]
  2. METFORMIN HCL [Concomitant]
  3. XYLOCAIN DENTAL ADRENALIN [Suspect]
     Route: 004
     Dates: start: 20110322, end: 20110322
  4. INSULATARD [Concomitant]
  5. PLENDIL [Concomitant]
  6. ENALAPRIL MALEATE [Concomitant]
  7. AVANDIA [Concomitant]

REACTIONS (1)
  - MYOCARDIAL INFARCTION [None]
